FAERS Safety Report 8817751 (Version 1)
Quarter: 2012Q4

REPORT INFORMATION
  Report Type: 
  Country: BR (occurrence: BR)
  Receive Date: 20121001
  Receipt Date: 20121001
  Transmission Date: 20130627
  Serious: Yes (Other)
  Sender: FDA-Public Use
  Company Number: BR-PFIZER INC-2012237788

PATIENT
  Age: 59 Year
  Sex: Female
  Weight: 64 kg

DRUGS (4)
  1. EFEXOR XR [Suspect]
     Indication: DEPRESSION
     Dosage: 150 mg (2 tablets), 2x/day, every morning and night (total of 4 tablets per day)
     Route: 048
     Dates: start: 20110924
  2. SEROQUEL [Concomitant]
     Indication: ANTIDEPRESSANT THERAPY
     Dosage: 1 tablet per day
     Dates: start: 2007
  3. DEPAKOTE [Concomitant]
     Indication: MOOD ALTERED
     Dosage: 2 tablets 2x/day (every 12 hours)
     Dates: start: 2002
  4. OLCADIL [Concomitant]
     Indication: ANXIOLYTIC THERAPY
     Dosage: 1 tablet a day
     Dates: start: 2006

REACTIONS (2)
  - Bipolar disorder [Unknown]
  - Off label use [Unknown]
